FAERS Safety Report 19846451 (Version 1)
Quarter: 2021Q3

REPORT INFORMATION
  Report Type: Spontaneous
  Country: US (occurrence: US)
  Receive Date: 20210917
  Receipt Date: 20210917
  Transmission Date: 20211014
  Serious: Yes (Death)
  Sender: FDA-Public Use
  Company Number: None

PATIENT
  Age: 72 Year
  Sex: Female
  Weight: 64 kg

DRUGS (4)
  1. DEXAMETHASONE. [Concomitant]
     Active Substance: DEXAMETHASONE
     Dates: start: 20210831, end: 20210908
  2. TOCILIZUMAB. [Suspect]
     Active Substance: TOCILIZUMAB
     Indication: COVID-19
     Dosage: ?          OTHER FREQUENCY:ONCE;?
     Route: 042
     Dates: start: 20210831, end: 20210831
  3. VANCOMCYIN [Concomitant]
     Active Substance: VANCOMYCIN
     Dates: start: 20210903, end: 20210910
  4. CEFEPIME [Concomitant]
     Active Substance: CEFEPIME HYDROCHLORIDE
     Dates: start: 20210903, end: 20210910

REACTIONS (7)
  - Dyspnoea [None]
  - Oxygen saturation decreased [None]
  - Cough [None]
  - Diarrhoea [None]
  - Leukocytosis [None]
  - Vomiting [None]
  - Acute respiratory failure [None]

NARRATIVE: CASE EVENT DATE: 20210910
